FAERS Safety Report 7562177-9 (Version None)
Quarter: 2011Q2

REPORT INFORMATION
  Report Type: 
  Country: None (occurrence: None)
  Receive Date: 20110614
  Receipt Date: 20110601
  Transmission Date: 20111010
  Serious: Yes (Hospitalization)
  Sender: FDA-Public Use
  Company Number: 2011MA006659

PATIENT
  Age: 73 Year
  Sex: Male

DRUGS (1)
  1. EPIRUBICIN HYDROCHLORIDE [Suspect]
     Indication: NEOPLASM
     Dosage: 50 ML;IVES
     Route: 043

REACTIONS (14)
  - SOFT TISSUE NECROSIS [None]
  - REDUCED BLADDER CAPACITY [None]
  - BLADDER PERFORATION [None]
  - CHILLS [None]
  - CELLULITIS [None]
  - BLADDER NECROSIS [None]
  - PYREXIA [None]
  - ILL-DEFINED DISORDER [None]
  - BLADDER DILATATION [None]
  - MICTURITION URGENCY [None]
  - EXTRAVASATION [None]
  - FIBROSIS [None]
  - DYSURIA [None]
  - DRUG INEFFECTIVE [None]
